FAERS Safety Report 10482769 (Version 1)
Quarter: 2014Q3

REPORT INFORMATION
  Report Type: Spontaneous
  Country: US (occurrence: US)
  Receive Date: 20140929
  Receipt Date: 20140929
  Transmission Date: 20150326
  Serious: No
  Sender: FDA-Public Use
  Company Number: US-ASTRAZENECA-2014SE68308

PATIENT
  Age: 67 Year
  Sex: Male
  Weight: 127 kg

DRUGS (17)
  1. ATENOLOL. [Suspect]
     Active Substance: ATENOLOL
     Route: 065
  2. NIFEDIPINE. [Concomitant]
     Active Substance: NIFEDIPINE
  3. FAMCICLOVIR. [Concomitant]
     Active Substance: FAMCICLOVIR
  4. ASPIRIN. [Concomitant]
     Active Substance: ASPIRIN
  5. CRESTOR [Suspect]
     Active Substance: ROSUVASTATIN CALCIUM
     Indication: BLOOD CHOLESTEROL INCREASED
     Route: 048
     Dates: start: 201406, end: 2014
  6. GABAPENTIN. [Concomitant]
     Active Substance: GABAPENTIN
  7. VITAMIN D [Concomitant]
     Active Substance: CHOLECALCIFEROL
  8. IRON [Concomitant]
     Active Substance: IRON
  9. STINGING METTLE LEAF EXTRACT [Concomitant]
  10. ISOSORBIDE [Concomitant]
     Active Substance: ISOSORBIDE
  11. TRAMADOL [Concomitant]
     Active Substance: TRAMADOL
  12. HYDROCHLOROTHIAZIDE. [Concomitant]
     Active Substance: HYDROCHLOROTHIAZIDE
  13. HYDRALAZINE [Concomitant]
     Active Substance: HYDRALAZINE HYDROCHLORIDE
  14. FOLIC ACID. [Concomitant]
     Active Substance: FOLIC ACID
  15. BUPROPION [Concomitant]
     Active Substance: BUPROPION
  16. POTASSIUM [Concomitant]
     Active Substance: POTASSIUM
  17. TERAZOSIN [Concomitant]
     Active Substance: TERAZOSIN\TERAZOSIN HYDROCHLORIDE

REACTIONS (4)
  - Abdominal pain upper [Unknown]
  - Malaise [Unknown]
  - Peripheral swelling [Unknown]
  - Diarrhoea [Unknown]

NARRATIVE: CASE EVENT DATE: 2011
